FAERS Safety Report 11191811 (Version 1)
Quarter: 2015Q2

REPORT INFORMATION
  Report Type: Spontaneous
  Country: US (occurrence: None)
  Receive Date: 20150615
  Receipt Date: 20150615
  Transmission Date: 20150821
  Serious: Yes (Other)
  Sender: FDA-Public Use
  Company Number: None

PATIENT
  Age: 57 Year
  Sex: Female

DRUGS (1)
  1. JADENU [Suspect]
     Active Substance: DEFERASIROX
     Dosage: 3  TABLETS
     Route: 048
     Dates: start: 20120706

REACTIONS (1)
  - Fatigue [None]

NARRATIVE: CASE EVENT DATE: 20150603
